FAERS Safety Report 5262303-0 (Version None)
Quarter: 2007Q1

REPORT INFORMATION
  Report Type: 
  Country: None (occurrence: None)
  Receive Date: 20070308
  Receipt Date: 20070223
  Transmission Date: 20070707
  Serious: Yes (Hospitalization)
  Sender: FDA-Public Use
  Company Number: T200700262

PATIENT
  Age: 55 Year
  Sex: Male

DRUGS (2)
  1. SODIUM IODIDE 131 CAP [Suspect]
     Indication: THYROID CANCER
     Dosage: 500 MBQ, SINGLE, ORAL
     Route: 048
     Dates: start: 20070212, end: 20070212
  2. INSULIN (INSULIN) [Concomitant]

REACTIONS (2)
  - ABDOMINAL PAIN [None]
  - NAUSEA [None]
